FAERS Safety Report 10664599 (Version 1)
Quarter: 2014Q4

REPORT INFORMATION
  Report Type: Spontaneous
  Country: FR (occurrence: None)
  Receive Date: 20141217
  Receipt Date: 20141217
  Transmission Date: 20150529
  Serious: Yes (Other)
  Sender: FDA-Public Use
  Company Number: 2661388

PATIENT
  Age: 72 Year
  Sex: Female

DRUGS (7)
  1. BLEOMYCIN [Suspect]
     Active Substance: BLEOMYCIN SULFATE
     Indication: DIFFUSE LARGE B-CELL LYMPHOMA
     Dosage: SIX 21-DAY CYCLES, CYCLICAL
     Dates: start: 201212, end: 201305
  2. ETOPOSIDE. [Suspect]
     Active Substance: ETOPOSIDE
     Indication: DIFFUSE LARGE B-CELL LYMPHOMA
     Dosage: SIX 21-DAY CYCLES, CYCLICAL
     Dates: start: 201212, end: 201305
  3. VINCRISTINE SULFATE. [Suspect]
     Active Substance: VINCRISTINE SULFATE
     Indication: DIFFUSE LARGE B-CELL LYMPHOMA
     Dosage: SIX 21-DAY CYCLES, CYCLICAL
     Dates: start: 201212, end: 201305
  4. CYCLOPHOSPHAMIDE. [Suspect]
     Active Substance: CYCLOPHOSPHAMIDE
     Indication: DIFFUSE LARGE B-CELL LYMPHOMA
     Dosage: SIX 21-DAY CYCLES, CYCLICAL
     Dates: start: 201212, end: 201305
  5. METHYLPREDNISOLONE. [Suspect]
     Active Substance: METHYLPREDNISOLONE
     Indication: DIFFUSE LARGE B-CELL LYMPHOMA
     Dosage: SIX 21-DAY CYCLES, CYCLICAL
     Dates: start: 201212, end: 201305
  6. RITUXIMAB [Suspect]
     Active Substance: RITUXIMAB
     Indication: DIFFUSE LARGE B-CELL LYMPHOMA
     Dosage: SIX 21-DAY CYCLES, CYCLICAL
     Dates: start: 201212, end: 201305
  7. MITOXANTRONE [Suspect]
     Active Substance: MITOXANTRONE HYDROCHLORIDE
     Indication: DIFFUSE LARGE B-CELL LYMPHOMA
     Dosage: SIX 21-DAY CYCLES, CYCLICAL
     Dates: start: 201212, end: 201305

REACTIONS (5)
  - Fatigue [None]
  - Thrombocytopenia [None]
  - Asthenia [None]
  - Fall [None]
  - Acute lymphocytic leukaemia [None]

NARRATIVE: CASE EVENT DATE: 201310
